FAERS Safety Report 4639979-1 (Version None)
Quarter: 2005Q2

REPORT INFORMATION
  Report Type: 
  Country: None (occurrence: None)
  Receive Date: 20050415
  Receipt Date: 20050415
  Transmission Date: 20051028
  Serious: Yes (Other)
  Sender: FDA-Public Use
  Company Number: None

PATIENT
  Sex: Female
  Weight: 45.5 kg

DRUGS (1)
  1. AMOXICILLIN [Suspect]
     Indication: PNEUMONIA
     Dosage: 500MG  BID  ORAL
     Route: 048
     Dates: start: 20050413, end: 20050414

REACTIONS (2)
  - RASH PRURITIC [None]
  - URTICARIA [None]
